FAERS Safety Report 4561783-3 (Version None)
Quarter: 2005Q1

REPORT INFORMATION
  Report Type: 
  Country: None (occurrence: None)
  Receive Date: 20050125
  Receipt Date: 20050110
  Transmission Date: 20050727
  Serious: Yes (Disabling, Other)
  Sender: FDA-Public Use
  Company Number: 2005014737

PATIENT
  Sex: Female
  Weight: 81.6475 kg

DRUGS (2)
  1. BEXTRA [Suspect]
     Indication: OSTEOARTHRITIS
     Dosage: 40 MG (20 MG, 2 IN 1 D), ORAL  3 TO 4 YEARS AGO
     Route: 048
     Dates: end: 20041101
  2. HYZAAR [Concomitant]

REACTIONS (4)
  - CHEST PAIN [None]
  - LIMB INJURY [None]
  - OSTEOARTHRITIS [None]
  - ROTATOR CUFF SYNDROME [None]
